FAERS Safety Report 9596815 (Version 1)
Quarter: 2013Q4

REPORT INFORMATION
  Report Type: Spontaneous
  Country: US (occurrence: US)
  Receive Date: 20131004
  Receipt Date: 20131004
  Transmission Date: 20140711
  Serious: No
  Sender: FDA-Public Use
  Company Number: US-AMGEN-USASP2012068536

PATIENT
  Sex: Female
  Weight: 99.77 kg

DRUGS (12)
  1. ENBREL [Suspect]
     Indication: PSORIASIS
     Dosage: 50 MG, 2 TIMES/WK
     Route: 058
  2. ARMOUR THYROID [Concomitant]
     Dosage: 30 MG, UNK
  3. IMURAN                             /00001501/ [Concomitant]
     Dosage: 50 MG, UNK
  4. NEURONTIN [Concomitant]
     Dosage: 600 MG, UNK
  5. PROTONIX [Concomitant]
     Dosage: 40 MG, UNK
  6. GLUCOPHAGE [Concomitant]
     Dosage: 500 MG, UNK
  7. PREDNISONE [Concomitant]
     Dosage: 05 MG, UNK
  8. LODINE [Concomitant]
     Dosage: 400 MG, UNK
  9. TRAZODONE [Concomitant]
     Dosage: 100 MG, UNK
  10. MULTIVITAMIN                       /00097801/ [Concomitant]
     Dosage: UNK,UNK,UNK
  11. GLUCOSAMINE+CHONDROITIN SULPHATE [Concomitant]
     Dosage: UNK,UNK,UNK
  12. LEVAQUIN [Concomitant]
     Dosage: 250 MG, UNK

REACTIONS (1)
  - Psoriasis [Unknown]
